FAERS Safety Report 9259076 (Version 1)
Quarter: 2013Q2

REPORT INFORMATION
  Report Type: Spontaneous
  Country: FR (occurrence: FR)
  Receive Date: 20130426
  Receipt Date: 20130426
  Transmission Date: 20140414
  Serious: Yes (Hospitalization)
  Sender: FDA-Public Use
  Company Number: FR-ASTRAZENECA-2013SE26748

PATIENT
  Age: 79 Year
  Sex: Female

DRUGS (7)
  1. XEROQUEL [Suspect]
     Route: 048
     Dates: start: 201210
  2. DOLIPRANE [Suspect]
     Route: 065
     Dates: start: 20130108
  3. TERCIAN [Suspect]
     Route: 065
     Dates: start: 201209
  4. LEXOMIL [Concomitant]
     Dates: start: 20130310
  5. LEVOTHYROX [Concomitant]
     Dates: start: 20121012
  6. NEBIVOLOL [Concomitant]
     Dates: start: 20121012
  7. LANSOYL [Concomitant]

REACTIONS (1)
  - Thrombocytopenia [Unknown]
